FAERS Safety Report 8261375 (Version 2)
Quarter: 2014Q4

REPORT INFORMATION
  Report Type: Report from Study
  Country: DE (occurrence: DE)
  Receive Date: 20111123
  Receipt Date: 20141201
  Transmission Date: 20150529
  Serious: Yes (Life-Threatening, Hospitalization)
  Sender: FDA-Public Use
  Company Number: DE-ROCHE-688383

PATIENT
  Age: 77 Year
  Sex: Female
  Weight: 100 kg

DRUGS (2)
  1. TAXOL [Concomitant]
     Active Substance: PACLITAXEL
     Indication: BREAST CANCER METASTATIC
     Dosage: 6 CYCLES
     Route: 065
     Dates: start: 20091117, end: 20100114
  2. BEVACIZUMAB [Suspect]
     Active Substance: BEVACIZUMAB
     Indication: BREAST CANCER METASTATIC
     Dosage: FROM 17 NOV 2009 UNTIL 14 JAN 2010 IN COMBINATION WITH PACLITAXEL
     Route: 065
     Dates: start: 20091117, end: 20100204

REACTIONS (7)
  - Intestinal perforation [Recovering/Resolving]
  - Oedema [Recovered/Resolved]
  - Impaired healing [Not Recovered/Not Resolved]
  - Pneumonia [Recovered/Resolved]
  - Diarrhoea [Unknown]
  - Pneumothorax [Recovered/Resolved]
  - Impaired healing [Recovered/Resolved]

NARRATIVE: CASE EVENT DATE: 20100215
